FAERS Safety Report 15448675 (Version 7)
Quarter: 2021Q4

REPORT INFORMATION
  Report Type: Spontaneous
  Country: US (occurrence: US)
  Receive Date: 20180929
  Receipt Date: 20211215
  Transmission Date: 20220303
  Serious: No
  Sender: FDA-Public Use
  Company Number: US-SA-2018SA270191

PATIENT
  Age: 23 Year
  Sex: Male

DRUGS (2)
  1. CEREZYME [Suspect]
     Active Substance: IMIGLUCERASE
     Indication: Gaucher^s disease
     Dosage: 1600 IU, QOW
     Route: 041
     Dates: start: 20160309
  2. CEREZYME [Suspect]
     Active Substance: IMIGLUCERASE
     Dosage: 1600 U, QOW
     Route: 041
     Dates: start: 20180924

REACTIONS (1)
  - Product dose omission issue [Unknown]
